FAERS Safety Report 9420266 (Version 2)
Quarter: 2014Q1

REPORT INFORMATION
  Report Type: Spontaneous
  Country: US (occurrence: US)
  Receive Date: 20130725
  Receipt Date: 20140106
  Transmission Date: 20141002
  Serious: No
  Sender: FDA-Public Use
  Company Number: US-PFIZER INC-2013217768

PATIENT
  Age: 44 Year
  Sex: Female
  Weight: 52.38 kg

DRUGS (3)
  1. LYRICA [Suspect]
     Indication: FIBROMYALGIA
     Dosage: 150 MG, 3X/DAY
     Route: 048
     Dates: start: 201210
  2. LYRICA [Suspect]
     Dosage: 200 MG, 1TAB 3X/DAY
     Route: 048
  3. TOPAMAX [Concomitant]
     Dosage: UNK

REACTIONS (1)
  - Pain [Unknown]
